FAERS Safety Report 9341860 (Version 1)
Quarter: 2013Q2

REPORT INFORMATION
  Report Type: Spontaneous
  Country: US (occurrence: US)
  Receive Date: 20130611
  Receipt Date: 20130611
  Transmission Date: 20140414
  Serious: Yes (Hospitalization)
  Sender: FDA-Public Use
  Company Number: US-NOVOPROD-361251

PATIENT
  Age: 36 Year
  Sex: Female
  Weight: 53.06 kg

DRUGS (5)
  1. NOVOLIN N [Suspect]
     Indication: GESTATIONAL DIABETES
     Dosage: 24 U AM, 4 U HS
     Route: 058
     Dates: start: 20120425, end: 20120613
  2. NOVOLOG [Suspect]
     Indication: GESTATIONAL DIABETES
     Dosage: UP TO 16 U AM, 8 U W LUNCH + 8 U W DINNER
     Route: 058
     Dates: start: 20120527, end: 20120613
  3. NOVOLOG [Suspect]
     Indication: TYPE 1 DIABETES MELLITUS
     Dosage: 5 U TID AC
     Route: 058
     Dates: start: 20120616
  4. NOVOLOG [Suspect]
     Dosage: APPROXIMATELY 20 UNITS
     Route: 058
  5. ANTIHYPERTENSIVES [Concomitant]
     Indication: PRE-ECLAMPSIA
     Dosage: UNK

REACTIONS (3)
  - Anti-insulin antibody increased [Recovered/Resolved with Sequelae]
  - Type 1 diabetes mellitus [Recovered/Resolved with Sequelae]
  - Diabetic ketoacidosis [Recovered/Resolved]
